FAERS Safety Report 12385344 (Version 1)
Quarter: 2016Q2

REPORT INFORMATION
  Report Type: Spontaneous
  Country: US (occurrence: US)
  Receive Date: 20160519
  Receipt Date: 20160519
  Transmission Date: 20160815
  Serious: No
  Sender: FDA-Public Use
  Company Number: US-009507513-1605USA007670

PATIENT
  Sex: Female

DRUGS (1)
  1. BELSOMRA [Suspect]
     Active Substance: SUVOREXANT

REACTIONS (3)
  - No therapeutic response [Not Recovered/Not Resolved]
  - Malaise [Not Recovered/Not Resolved]
  - Economic problem [Not Recovered/Not Resolved]
